FAERS Safety Report 20537414 (Version 2)
Quarter: 2022Q1

REPORT INFORMATION
  Report Type: Spontaneous
  Country: JP (occurrence: JP)
  Receive Date: 20220302
  Receipt Date: 20220315
  Transmission Date: 20220423
  Serious: No
  Sender: FDA-Public Use
  Company Number: JP-GLAXOSMITHKLINE-JP2022JPN034157

PATIENT
  Age: 51 Year
  Sex: Male
  Weight: 77.9 kg

DRUGS (6)
  1. SOTROVIMAB [Suspect]
     Active Substance: SOTROVIMAB
     Indication: COVID-19
     Dosage: 500 MG/100 ML/60 MINUTES, QD
     Dates: start: 20220207, end: 20220207
  2. IPRAGLIFLOZIN L-PROLINE [Concomitant]
     Active Substance: IPRAGLIFLOZIN L-PROLINE
     Indication: Type 1 diabetes mellitus
     Dosage: 50 MG, QD, IN THE MORNING
     Route: 048
  3. INSULIN LISPRO (GENETICAL RECOMBINATION) [Concomitant]
     Indication: Type 1 diabetes mellitus
     Dosage: 8 UNITS IN THE MORNING, 13 UNITS AT NOON AND 19 UNITS AT NIGHT, TID
     Route: 042
  4. INSULIN DEGLUDEC (GENETICAL RECOMBINATION) [Concomitant]
     Indication: Type 1 diabetes mellitus
     Dosage: 42 UNITS, QD, IN THE EVENING
     Route: 042
  5. SYMBICORT [Concomitant]
     Active Substance: BUDESONIDE\FORMOTEROL FUMARATE DIHYDRATE
     Indication: Asthma
     Dosage: 2 INHALATIONS, BID
     Route: 055
  6. MONTELUKAST SODIUM [Concomitant]
     Active Substance: MONTELUKAST SODIUM
     Indication: Asthma
     Dosage: 10 MG, QD, BEFORE BED
     Route: 048

REACTIONS (1)
  - COVID-19 [Recovered/Resolved]
